FAERS Safety Report 10561347 (Version 5)
Quarter: 2015Q1

REPORT INFORMATION
  Report Type: Spontaneous
  Country: US (occurrence: US)
  Receive Date: 20141103
  Receipt Date: 20150330
  Transmission Date: 20150720
  Serious: Yes (Other)
  Sender: FDA-Public Use
  Company Number: US-PFIZER INC-2014302402

PATIENT
  Age: 53 Year
  Sex: Male
  Weight: 152 kg

DRUGS (3)
  1. LYRICA [Suspect]
     Active Substance: PREGABALIN
     Indication: DIABETIC NEUROPATHY
     Dosage: 75 MG, 2X/DAY
  2. METFORMIN [Concomitant]
     Active Substance: METFORMIN HYDROCHLORIDE
     Indication: DIABETES MELLITUS
     Dosage: 850 MG, 3X/DAY
  3. HALOPERIDOL. [Concomitant]
     Active Substance: HALOPERIDOL
     Indication: MENTAL DISORDER
     Dosage: 10 MG, 3X/DAY

REACTIONS (3)
  - Gangrene [Unknown]
  - Thrombosis [Unknown]
  - Drug effect incomplete [Unknown]
